FAERS Safety Report 12605193 (Version 1)
Quarter: 2016Q3

REPORT INFORMATION
  Report Type: Spontaneous
  Country: FI (occurrence: FI)
  Receive Date: 20160729
  Receipt Date: 20160729
  Transmission Date: 20161109
  Serious: Yes (Hospitalization, Other)
  Sender: FDA-Public Use
  Company Number: FI-AMGEN-FINSP2016028378

PATIENT
  Age: 82 Year
  Sex: Female
  Weight: 82 kg

DRUGS (22)
  1. DEXAMETHASONE. [Concomitant]
     Active Substance: DEXAMETHASONE
     Dosage: UNK
  2. BUDESONIDE. [Concomitant]
     Active Substance: BUDESONIDE
     Indication: ASTHMA
     Dosage: UNK
  3. LYRICA [Concomitant]
     Active Substance: PREGABALIN
     Dosage: UNK
  4. TAVANIC [Concomitant]
     Active Substance: LEVOFLOXACIN
     Dosage: UNK
  5. PRIMASPAN [Concomitant]
     Active Substance: ASPIRIN
     Dosage: 50 MG, QD
     Dates: end: 20160106
  6. WARFARIN [Concomitant]
     Active Substance: WARFARIN
     Indication: ATRIAL FIBRILLATION
     Dosage: UNK
     Route: 048
  7. FURESIS [Concomitant]
     Active Substance: FUROSEMIDE
     Dosage: 10 MG, QD
  8. ERDOPECT [Concomitant]
  9. LENALIDOMIDE [Suspect]
     Active Substance: LENALIDOMIDE
     Indication: PLASMA CELL MYELOMA
     Dosage: UNK
     Route: 048
     Dates: start: 20151214
  10. ORMOX [Concomitant]
     Dosage: UNK
  11. KLEXANE [Concomitant]
     Active Substance: ENOXAPARIN
     Dosage: UNK
  12. AMOXICILLIN TRIHYDRATE [Concomitant]
     Active Substance: AMOXICILLIN
     Dosage: UNK 875/125 MG 1 X 3,
  13. SOMAC [Concomitant]
     Active Substance: PANTOPRAZOLE SODIUM
     Dosage: UNK
  14. REVLIMID [Concomitant]
     Active Substance: LENALIDOMIDE
     Dosage: UNK
  15. BISOPROLOL [Concomitant]
     Active Substance: BISOPROLOL
     Indication: ATRIAL FIBRILLATION
     Dosage: UNK
     Route: 048
  16. BECLOMET [Concomitant]
     Dosage: UNK
  17. ONDANSETRON [Concomitant]
     Active Substance: ONDANSETRON
     Dosage: 4 MG, UNK
  18. KYPROLIS [Suspect]
     Active Substance: CARFILZOMIB
     Indication: PLASMA CELL MYELOMA
     Dosage: UNK
     Route: 042
     Dates: start: 20151214
  19. ISOSORBIDE MONONITRATE. [Concomitant]
     Active Substance: ISOSORBIDE MONONITRATE
     Indication: CORONARY ARTERY DISEASE
     Dosage: UNK
     Route: 048
     Dates: start: 2014
  20. LEVOLAC [Concomitant]
     Active Substance: LACTULOSE
     Dosage: UNK
  21. MAREVAN [Concomitant]
     Active Substance: WARFARIN SODIUM
     Dosage: 3 MG, UNK
  22. TAZOCIN [Concomitant]
     Active Substance: PIPERACILLIN SODIUM\TAZOBACTAM SODIUM
     Dosage: 4 G, UNK 1X3

REACTIONS (18)
  - Monocyte count increased [Unknown]
  - Diarrhoea [Unknown]
  - Anaemia [Unknown]
  - Pneumonia bacterial [Unknown]
  - Hypokalaemia [Recovering/Resolving]
  - C-reactive protein increased [Unknown]
  - Blood sodium decreased [Unknown]
  - Pain [Unknown]
  - Coronary artery stenosis [Unknown]
  - Nosocomial infection [Unknown]
  - Blood bicarbonate decreased [Unknown]
  - Serum ferritin increased [Unknown]
  - Prothrombin time shortened [Unknown]
  - Thrombocytopenia [Recovered/Resolved]
  - Atrial fibrillation [Unknown]
  - Neuralgia [Unknown]
  - Myocardial infarction [Recovered/Resolved]
  - Blood glucose increased [Unknown]

NARRATIVE: CASE EVENT DATE: 20151221
